FAERS Safety Report 17864690 (Version 1)
Quarter: 2020Q2

REPORT INFORMATION
  Report Type: Spontaneous
  Country: US (occurrence: US)
  Receive Date: 20200604
  Receipt Date: 20200604
  Transmission Date: 20200714
  Serious: Yes (Hospitalization)
  Sender: FDA-Public Use
  Company Number: None

PATIENT
  Age: 57 Year
  Sex: Female
  Weight: 76 kg

DRUGS (1)
  1. SULFAMETHOXAZOLE/TRIMETHOPRIM (SULFAMETHOXAZOLE 800MG/TRIMETHOPRIM 160MG TAB) [Suspect]
     Active Substance: SULFAMETHOXAZOLE\TRIMETHOPRIM
     Indication: URINARY TRACT INFECTION
     Route: 048
     Dates: start: 20191122, end: 20191211

REACTIONS (8)
  - Rash [None]
  - Oedema [None]
  - Erythema multiforme [None]
  - Pruritus [None]
  - Dysphagia [None]
  - Respiratory tract oedema [None]
  - Urticaria [None]
  - Dysphonia [None]

NARRATIVE: CASE EVENT DATE: 20191211
